FAERS Safety Report 7792670-5 (Version None)
Quarter: 2011Q3

REPORT INFORMATION
  Report Type: 
  Country: None (occurrence: None)
  Receive Date: 20110929
  Receipt Date: 20110921
  Transmission Date: 20111222
  Serious: Yes (Death, Hospitalization, Other)
  Sender: FDA-Public Use
  Company Number: AUR-APL-2011-05150

PATIENT
  Age: 20 Year
  Sex: Male

DRUGS (6)
  1. ACETAMINOPHEN [Suspect]
     Indication: PRODUCT USED FOR UNKNOWN INDICATION
     Dosage: ORAL
     Route: 048
  2. TRICYCLIC ANTIDEPRESSANTS (TRICYCLIC ANTIDEPRESSANTS) [Suspect]
     Indication: PRODUCT USED FOR UNKNOWN INDICATION
     Dosage: ORAL
     Route: 048
  3. ERYTHROMYCIN [Suspect]
     Indication: PRODUCT USED FOR UNKNOWN INDICATION
     Dosage: ORAL
     Route: 048
  4. LOPERAMIDE [Suspect]
     Indication: PRODUCT USED FOR UNKNOWN INDICATION
     Dosage: ORAL
     Route: 048
  5. FERROUS SULFATE TAB [Suspect]
     Indication: PRODUCT USED FOR UNKNOWN INDICATION
     Dosage: ORAL
     Route: 048
  6. AMOXICILLIN [Suspect]
     Indication: PRODUCT USED FOR UNKNOWN INDICATION
     Dosage: ORAL
     Route: 048

REACTIONS (16)
  - BLOOD IRON INCREASED [None]
  - NERVOUS SYSTEM DISORDER [None]
  - SEPSIS [None]
  - MULTIPLE DRUG OVERDOSE [None]
  - BRAIN OEDEMA [None]
  - TOXICITY TO VARIOUS AGENTS [None]
  - DRUG INTERACTION [None]
  - LIVER INJURY [None]
  - METABOLIC DISORDER [None]
  - BRAIN HERNIATION [None]
  - HEPATIC NECROSIS [None]
  - PROTHROMBIN TIME PROLONGED [None]
  - BLOOD LACTIC ACID INCREASED [None]
  - AMMONIA INCREASED [None]
  - CHOLESTASIS [None]
  - ACUTE HEPATIC FAILURE [None]
